FAERS Safety Report 7151784-3 (Version None)
Quarter: 2011Q1

REPORT INFORMATION
  Report Type: 
  Country: None (occurrence: None)
  Receive Date: 20101210
  Receipt Date: 20101125
  Transmission Date: 20110831
  Serious: Yes (Hospitalization)
  Sender: FDA-Public Use
  Company Number: DE-PFIZER INC-DE-WYE-H07689809

PATIENT
  Age: 86 Year
  Sex: Female

DRUGS (9)
  1. ACETYLSALICYLIC ACID [Concomitant]
     Route: 048
  2. CARVEDILOL [Concomitant]
     Route: 048
  3. SPIRONOLACTONE [Concomitant]
     Indication: OEDEMA
     Dosage: 50 MG, 1X/DAY
     Route: 048
     Dates: end: 20080805
  4. PLAVIX [Concomitant]
     Route: 048
  5. LEVOTHYROXINE SODIUM [Concomitant]
     Dosage: UNK
     Route: 048
     Dates: start: 20080801
  6. ENALAPRIL [Concomitant]
     Indication: HYPERTENSION
     Dosage: 5 MG, 2X/DAY
     Route: 048
  7. PENTAERYTHRITOL TETRANITRATE [Concomitant]
     Route: 048
  8. AMIODARONE HCL [Suspect]
     Dosage: 100 MG, 2X/DAY
     Route: 048
  9. TOREM [Concomitant]
     Indication: CARDIAC FAILURE
     Dosage: 5 MG, 1X/DAY
     Route: 048
     Dates: end: 20080805

REACTIONS (5)
  - HYPERKALAEMIA [None]
  - HYPOTHYROIDISM [None]
  - GENERAL PHYSICAL HEALTH DETERIORATION [None]
  - HYPONATRAEMIA [None]
  - DEHYDRATION [None]
